FAERS Safety Report 13813201 (Version 1)
Quarter: 2017Q3

REPORT INFORMATION
  Report Type: Spontaneous
  Country: US (occurrence: US)
  Receive Date: 20170729
  Receipt Date: 20170729
  Transmission Date: 20171127
  Serious: Yes (Other)
  Sender: FDA-Public Use
  Company Number: US-AUROBINDO-AUR-APL-2017-37253

PATIENT
  Age: 57 Year
  Sex: Male

DRUGS (9)
  1. COLISTIMETHATE SODIUM. [Suspect]
     Active Substance: COLISTIMETHATE SODIUM
     Indication: PSEUDOMONAS INFECTION
     Dosage: UNK, 3 MG/KG/DAY DIVIDED INTO 2 DOSES
     Route: 042
  2. POLYMYXIN B. [Suspect]
     Active Substance: POLYMYXIN B
     Indication: PRODUCT USED FOR UNKNOWN INDICATION
     Dosage: 160 MG, LOADING DOSE
     Route: 042
  3. FLUCONAZOLE. [Suspect]
     Active Substance: FLUCONAZOLE
     Indication: PRODUCT USED FOR UNKNOWN INDICATION
     Dosage: 400 MG, DAILY
     Route: 048
  4. POLYMYXIN B. [Suspect]
     Active Substance: POLYMYXIN B
     Dosage: 100 MG, UNK
     Route: 042
  5. ZANAFLEX [Suspect]
     Active Substance: TIZANIDINE HYDROCHLORIDE
     Dosage: 4 MG, UNK
     Route: 048
  6. MEROPENEM 1000 MG [Suspect]
     Active Substance: MEROPENEM
     Indication: PSEUDOMONAS INFECTION
     Dosage: 1 G EVERY 8 HOURS
     Route: 042
  7. MEROPENEM 1000 MG [Suspect]
     Active Substance: MEROPENEM
     Dosage: 2 G, EVERY 8 HOURS
     Route: 042
  8. ZANAFLEX [Suspect]
     Active Substance: TIZANIDINE HYDROCHLORIDE
     Indication: PRODUCT USED FOR UNKNOWN INDICATION
     Dosage: 1 MG, ONCE A DAY AT BED TIME
  9. TISSUE PLASMINOGEN ACTIVATOR, RECOMBINANT [Concomitant]
     Active Substance: ALTEPLASE
     Indication: ISCHAEMIC STROKE
     Dosage: UNK

REACTIONS (6)
  - Respiratory paralysis [Unknown]
  - Dysarthria [Unknown]
  - Dyspnoea [Unknown]
  - Asthenia [Unknown]
  - Eosinophilia [Recovering/Resolving]
  - Fall [Unknown]
